FAERS Safety Report 7404852-2 (Version None)
Quarter: 2011Q2

REPORT INFORMATION
  Report Type: 
  Country: None (occurrence: None)
  Receive Date: 20110411
  Receipt Date: 20110329
  Transmission Date: 20111010
  Serious: Yes (Hospitalization)
  Sender: FDA-Public Use
  Company Number: FR-JNJFOC-20110400085

PATIENT
  Sex: Female

DRUGS (1)
  1. DURAGESIC-100 [Suspect]
     Indication: PAIN
     Route: 062
     Dates: start: 20110303, end: 20110307

REACTIONS (8)
  - SKIN REACTION [None]
  - ASTHENIA [None]
  - PRURITUS [None]
  - MALAISE [None]
  - OXYGEN SATURATION DECREASED [None]
  - ERYTHEMA [None]
  - HYPERHIDROSIS [None]
  - NAUSEA [None]
